FAERS Safety Report 7172768-5 (Version None)
Quarter: 2010Q4

REPORT INFORMATION
  Report Type: 
  Country: None (occurrence: None)
  Receive Date: 20101219
  Receipt Date: 20100212
  Transmission Date: 20110411
  Serious: Yes (Other)
  Sender: FDA-Public Use
  Company Number: US-AMGEN-KDL393711

PATIENT

DRUGS (2)
  1. ENBREL [Suspect]
     Indication: PSORIASIS
     Dosage: UNK UNK, UNK
     Dates: start: 20080101
  2. VARENICLINE TARTRATE [Concomitant]
     Dosage: UNK UNK, UNK
     Dates: start: 20080101

REACTIONS (5)
  - BREAST CANCER [None]
  - DRUG INTERACTION [None]
  - ONYCHOMADESIS [None]
  - PSORIASIS [None]
  - VOMITING [None]
